FAERS Safety Report 20663801 (Version 2)
Quarter: 2022Q3

REPORT INFORMATION
  Report Type: Spontaneous
  Country: CA (occurrence: CA)
  Receive Date: 20220401
  Receipt Date: 20220712
  Transmission Date: 20221027
  Serious: Yes (Death, Other)
  Sender: FDA-Public Use
  Company Number: CA-GLAXOSMITHKLINE-CA2022GSK058371

PATIENT

DRUGS (3)
  1. ZANTAC [Suspect]
     Active Substance: RANITIDINE HYDROCHLORIDE
     Indication: Dyspepsia
     Dosage: UNK
     Route: 065
  2. ZANTAC [Suspect]
     Active Substance: RANITIDINE HYDROCHLORIDE
     Indication: Dyspepsia
  3. ZANTAC [Suspect]
     Active Substance: RANITIDINE HYDROCHLORIDE
     Indication: Gastrooesophageal reflux disease

REACTIONS (11)
  - Death [Fatal]
  - Endometrial cancer [Unknown]
  - Endometrial cancer stage III [Unknown]
  - Postmenopausal haemorrhage [Unknown]
  - Endometrial cancer metastatic [Unknown]
  - Metastases to pelvis [Unknown]
  - Metastases to ovary [Unknown]
  - Metastases to fallopian tube [Unknown]
  - Ovarian mass [Unknown]
  - Uterine enlargement [Unknown]
  - Endometrial thickening [Unknown]
